FAERS Safety Report 23183426 (Version 2)
Quarter: 2024Q1

REPORT INFORMATION
  Report Type: Report from Study
  Country: CA (occurrence: CA)
  Receive Date: 20231114
  Receipt Date: 20240319
  Transmission Date: 20240410
  Serious: Yes (Other)
  Sender: FDA-Public Use
  Company Number: CA-TAIHOP-2023-005843

PATIENT
  Age: 80 Year
  Sex: Male

DRUGS (1)
  1. LONSURF [Suspect]
     Active Substance: TIPIRACIL HYDROCHLORIDE\TRIFLURIDINE
     Indication: Colorectal cancer metastatic
     Dosage: CYCLE 1 STARTED 12/JUL/2023; CYCLE 2 STARTED 17/AUG/2023; CYCLE UNKNOWN STARTED 07/NOV/2023; CURRENT
     Route: 048
     Dates: start: 20230712

REACTIONS (5)
  - Transfusion [Unknown]
  - Asthenia [Not Recovered/Not Resolved]
  - Fatigue [Not Recovered/Not Resolved]
  - Abdominal distension [Recovering/Resolving]
  - Decreased appetite [Unknown]
